FAERS Safety Report 10587838 (Version 1)
Quarter: 2014Q4

REPORT INFORMATION
  Report Type: Spontaneous
  Country: FR (occurrence: FR)
  Receive Date: 20141117
  Receipt Date: 20141117
  Transmission Date: 20150529
  Serious: Yes (Hospitalization)
  Sender: FDA-Public Use
  Company Number: FR-TEVA-521240ISR

PATIENT
  Age: 54 Year
  Sex: Male

DRUGS (10)
  1. SERTRALINE [Suspect]
     Active Substance: SERTRALINE HYDROCHLORIDE
     Route: 048
     Dates: start: 20140730, end: 20140813
  2. ATARAX [Suspect]
     Active Substance: HYDROXYZINE\HYDROXYZINE HYDROCHLORIDE
     Route: 048
     Dates: start: 20140628
  3. DEPAMIDE 300MG [Suspect]
     Active Substance: VALPROMIDE
     Route: 048
     Dates: start: 20140708
  4. SPASFON [Suspect]
     Active Substance: PHLOROGLUCINOL
     Dosage: LONG-TERM TREATMENT
     Route: 048
  5. ANAFRANIL [Suspect]
     Active Substance: CLOMIPRAMINE HYDROCHLORIDE
     Route: 048
     Dates: start: 20140812, end: 20140827
  6. HAVLANE [Suspect]
     Active Substance: LOPRAZOLAM
     Route: 048
     Dates: start: 201406, end: 20140624
  7. VALIUM [Suspect]
     Active Substance: DIAZEPAM
     Dosage: LONG-TERM TREATMENT
     Route: 048
  8. DAFALGAN [Suspect]
     Active Substance: ACETAMINOPHEN
     Route: 048
     Dates: start: 201404
  9. ANAFRANIL [Suspect]
     Active Substance: CLOMIPRAMINE HYDROCHLORIDE
     Route: 048
     Dates: start: 20140623, end: 20140704
  10. HAVLANE [Suspect]
     Active Substance: LOPRAZOLAM
     Route: 048
     Dates: start: 20140708

REACTIONS (4)
  - Infection [Unknown]
  - Lung disorder [Unknown]
  - Chest pain [Unknown]
  - Pleural effusion [Recovering/Resolving]

NARRATIVE: CASE EVENT DATE: 20140712
